FAERS Safety Report 22888634 (Version 3)
Quarter: 2023Q4

REPORT INFORMATION
  Report Type: Report from Study
  Country: US (occurrence: US)
  Receive Date: 20230831
  Receipt Date: 20231128
  Transmission Date: 20240109
  Serious: No
  Sender: FDA-Public Use
  Company Number: US-002147023-NVSC2023US188407

PATIENT
  Sex: Male

DRUGS (1)
  1. ZOLGENSMA [Suspect]
     Active Substance: ONASEMNOGENE ABEPARVOVEC-XIOI
     Indication: Spinal muscular atrophy
     Dosage: UNK, ONCE/SINGLE (ONE SINGLE DOSE)
     Route: 042
     Dates: start: 20230828, end: 20230828

REACTIONS (8)
  - Lymphocyte count increased [Unknown]
  - Mean cell volume decreased [Unknown]
  - Blood albumin decreased [Unknown]
  - White blood cell count decreased [Unknown]
  - Mean cell haemoglobin decreased [Unknown]
  - Vomiting [Unknown]
  - Aspartate aminotransferase increased [Unknown]
  - Alanine aminotransferase increased [Unknown]
